FAERS Safety Report 9062079 (Version 1)
Quarter: 2013Q1

REPORT INFORMATION
  Report Type: Spontaneous
  Country: US (occurrence: US)
  Receive Date: 20130127
  Receipt Date: 20130127
  Transmission Date: 20140127
  Serious: No
  Sender: FDA-Public Use
  Company Number: US-ALLERGAN-1214654US

PATIENT
  Age: 19 Year
  Sex: Male

DRUGS (3)
  1. PRED FORTE [Suspect]
     Indication: EYE INFLAMMATION
     Dosage: 1 GTT, Q2HR
     Route: 047
  2. THERATEARS [Concomitant]
     Indication: EYE LUBRICATION THERAPY
  3. ANTIBIOTIC DROPS [Concomitant]
     Indication: PRODUCT USED FOR UNKNOWN INDICATION

REACTIONS (2)
  - Eye disorder [Unknown]
  - Intraocular pressure increased [Unknown]
